FAERS Safety Report 24546354 (Version 1)
Quarter: 2024Q4

REPORT INFORMATION
  Report Type: Other
  Country: ES (occurrence: ES)
  Receive Date: 20241024
  Receipt Date: 20241024
  Transmission Date: 20250115
  Serious: Yes (Other)
  Sender: ORBION PHARMACEUTICALS PRIVATE LIMITED
  Company Number: ES-OrBion Pharmaceuticals Private Limited-2163281

PATIENT
  Age: 64 Year
  Sex: Female

DRUGS (1)
  1. OLANZAPINE [Suspect]
     Active Substance: OLANZAPINE
     Indication: Schizophrenia

REACTIONS (2)
  - Haemolytic anaemia [Recovering/Resolving]
  - Neutropenia [Recovering/Resolving]
